FAERS Safety Report 21733859 (Version 1)
Quarter: 2022Q4

REPORT INFORMATION
  Report Type: Spontaneous
  Country: US (occurrence: None)
  Receive Date: 20221214
  Receipt Date: 20221214
  Transmission Date: 20230113
  Serious: Yes (Death)
  Sender: FDA-Public Use
  Company Number: None

PATIENT
  Sex: Female

DRUGS (8)
  1. CAPECITABINE [Suspect]
     Active Substance: CAPECITABINE
     Indication: Breast cancer female
     Route: 048
     Dates: start: 20220405
  2. CENTRUM TAB SILVER [Concomitant]
  3. CITRACAL TAB MAXIMUM [Concomitant]
  4. GINKGO [Concomitant]
     Active Substance: GINKGO
  5. IBRANCE [Concomitant]
     Active Substance: PALBOCICLIB
  6. PEPTO BISMOL [Concomitant]
  7. TEMAZEPAM [Concomitant]
     Active Substance: TEMAZEPAM
  8. VITAMIN B12 [Concomitant]
     Active Substance: CYANOCOBALAMIN

REACTIONS (1)
  - Death [None]
